FAERS Safety Report 20960473 (Version 1)
Quarter: 2022Q2

REPORT INFORMATION
  Report Type: Spontaneous
  Country: FR (occurrence: FR)
  Receive Date: 20220615
  Receipt Date: 20220615
  Transmission Date: 20220721
  Serious: Yes (Other)
  Sender: FDA-Public Use
  Company Number: None

PATIENT
  Age: 26 Year
  Sex: Male

DRUGS (3)
  1. PREGABALIN [Suspect]
     Active Substance: PREGABALIN
     Dosage: MORE THAN 600 MG/DOSE
     Route: 048
     Dates: start: 2018
  2. COCAINE [Suspect]
     Active Substance: COCAINE
     Dosage: UNSPECIFIED
     Route: 045
     Dates: start: 2019
  3. ALCOHOL [Suspect]
     Active Substance: ALCOHOL
     Dosage: UNSPECIFIED
     Route: 048
     Dates: start: 2019

REACTIONS (3)
  - Intentional overdose [Unknown]
  - Dependence [Not Recovered/Not Resolved]
  - Drug abuse [Not Recovered/Not Resolved]

NARRATIVE: CASE EVENT DATE: 20180101
